FAERS Safety Report 25890651 (Version 1)
Quarter: 2025Q4

REPORT INFORMATION
  Report Type: Spontaneous
  Country: EU (occurrence: EU)
  Receive Date: 20251007
  Receipt Date: 20251007
  Transmission Date: 20260117
  Serious: Yes (Hospitalization, Other)
  Sender: SANDOZ
  Company Number: None

PATIENT
  Age: 30 Year
  Sex: Female

DRUGS (8)
  1. ALPRAZOLAM [Suspect]
     Active Substance: ALPRAZOLAM
     Dosage: 0.5 (4-0-3)
     Route: 065
     Dates: start: 2023
  2. ALPRAZOLAM [Suspect]
     Active Substance: ALPRAZOLAM
     Indication: Anxiety disorder
     Dosage: 0.5 X 20 DOSAGE FORM IN
     Route: 065
     Dates: start: 20250720, end: 20250721
  3. BROMAZEPAM [Suspect]
     Active Substance: BROMAZEPAM
     Indication: Merycism
     Dosage: 6 MG, TID(18 MILLI-INTERNATIONAL UNIT)
     Route: 065
     Dates: start: 2023
  4. OXAZEPAM [Suspect]
     Active Substance: OXAZEPAM
     Indication: Product used for unknown indication
     Dosage: X 50 MILLIGRAM IN
     Route: 065
  5. HERBALS\TETRAHYDROCANNABINOL UNSPECIFIED [Suspect]
     Active Substance: HERBALS\TETRAHYDROCANNABINOL UNSPECIFIED
     Indication: Product used for unknown indication
     Dosage: UNK
     Route: 065
  6. URSODIOL [Concomitant]
     Active Substance: URSODIOL
     Indication: Product used for unknown indication
     Dosage: 500
     Route: 065
  7. CREON [Concomitant]
     Active Substance: PANCRELIPASE AMYLASE\PANCRELIPASE LIPASE\PANCRELIPASE PROTEASE
     Indication: Product used for unknown indication
     Dosage: 25,000
     Route: 065
  8. VENLAFAXINE [Concomitant]
     Active Substance: VENLAFAXINE HYDROCHLORIDE
     Indication: Product used for unknown indication
     Dosage: LP 75
     Route: 065

REACTIONS (8)
  - Substance use disorder [Unknown]
  - Drug withdrawal syndrome [Unknown]
  - Dependence [Not Recovered/Not Resolved]
  - Drug dependence, antepartum [Recovering/Resolving]
  - Prescription form tampering [Unknown]
  - Intentional product misuse [Unknown]
  - Maternal exposure during pregnancy [Not Recovered/Not Resolved]
  - Off label use [Unknown]
